FAERS Safety Report 6647119-2 (Version None)
Quarter: 2010Q1

REPORT INFORMATION
  Report Type: 
  Country: None (occurrence: None)
  Receive Date: 20100323
  Receipt Date: 20100312
  Transmission Date: 20100710
  Serious: Yes (Hospitalization, Other)
  Sender: FDA-Public Use
  Company Number: PHEH2010US03108

PATIENT
  Sex: Female

DRUGS (12)
  1. RECLAST [Suspect]
     Dosage: THREE TIMES
     Dates: start: 20060101
  2. PROCARDIA [Concomitant]
  3. HYTRIN [Concomitant]
  4. PLAQUENIL [Concomitant]
  5. NABUMETONE [Concomitant]
  6. CALCIUM [Concomitant]
  7. IRON [Concomitant]
  8. LOVASTATIN [Concomitant]
  9. NABUMETONE [Concomitant]
  10. TERAZOSIN HCL [Concomitant]
  11. HYDROXYCHLOROQUINE SULFATE [Concomitant]
  12. NIFEDIPINE [Concomitant]

REACTIONS (12)
  - BACK DISORDER [None]
  - BLOOD TEST ABNORMAL [None]
  - BRADYCARDIA [None]
  - CARDIAC PACEMAKER INSERTION [None]
  - DYSPNOEA EXERTIONAL [None]
  - DYSSTASIA [None]
  - FEELING ABNORMAL [None]
  - GAIT DISTURBANCE [None]
  - GINGIVAL DISORDER [None]
  - LOSS OF CONSCIOUSNESS [None]
  - NECK PAIN [None]
  - PAIN IN EXTREMITY [None]
